FAERS Safety Report 7358926-5 (Version None)
Quarter: 2011Q1

REPORT INFORMATION
  Report Type: 
  Country: None (occurrence: None)
  Receive Date: 20110317
  Receipt Date: 20110311
  Transmission Date: 20110831
  Serious: Yes (Other)
  Sender: FDA-Public Use
  Company Number: AU-BRISTOL-MYERS SQUIBB COMPANY-15601529

PATIENT
  Sex: Female

DRUGS (3)
  1. ORENCIA [Suspect]
     Dosage: FOR A LONG TIME
  2. METHOTREXATE [Suspect]
  3. LEFLUNOMIDE [Suspect]

REACTIONS (1)
  - LUNG DISORDER [None]
